FAERS Safety Report 15229883 (Version 1)
Quarter: 2018Q3

REPORT INFORMATION
  Report Type: Spontaneous
  Country: ES (occurrence: ES)
  Receive Date: 20180802
  Receipt Date: 20180802
  Transmission Date: 20181010
  Serious: Yes (Hospitalization)
  Sender: FDA-Public Use
  Company Number: ES-ROCHE-2162038

PATIENT
  Sex: Female

DRUGS (8)
  1. DOBUTAMINE [Concomitant]
     Active Substance: DOBUTAMINE\DOBUTAMINE HYDROCHLORIDE
     Route: 065
  2. METAMIZOLE MAGNESIUM [Suspect]
     Active Substance: METAMIZOLE MAGNESIUM
     Indication: PRODUCT USED FOR UNKNOWN INDICATION
     Route: 064
  3. AMITRIPTYLINE HYDROCHLORIDE. [Suspect]
     Active Substance: AMITRIPTYLINE HYDROCHLORIDE
     Indication: ANALGESIC THERAPY
     Route: 064
  4. MORPHINE [Suspect]
     Active Substance: MORPHINE
     Indication: ANALGESIC THERAPY
     Route: 064
  5. DOPAMINE [Concomitant]
     Active Substance: DOPAMINE\DOPAMINE HYDROCHLORIDE
     Route: 065
  6. METAMIZOLE MAGNESIUM [Suspect]
     Active Substance: METAMIZOLE MAGNESIUM
     Route: 064
  7. DIAZEPAM. [Suspect]
     Active Substance: DIAZEPAM
     Indication: ANALGESIC THERAPY
     Route: 064
  8. FENTANYL. [Concomitant]
     Active Substance: FENTANYL
     Route: 065

REACTIONS (9)
  - Hypermagnesaemia [Recovered/Resolved]
  - Foetal exposure during pregnancy [Unknown]
  - Hyporeflexia [Recovered/Resolved]
  - Hypotonia neonatal [Recovered/Resolved]
  - Decreased activity [Recovered/Resolved]
  - Asthenia [Recovered/Resolved]
  - Bradycardia neonatal [Recovered/Resolved]
  - Electrocardiogram QT prolonged [Recovered/Resolved]
  - Lethargy [Recovered/Resolved]
